FAERS Safety Report 6124636-5 (Version None)
Quarter: 2009Q1

REPORT INFORMATION
  Report Type: 
  Country: None (occurrence: None)
  Receive Date: 20090319
  Receipt Date: 20090311
  Transmission Date: 20090719
  Serious: Yes (Hospitalization)
  Sender: FDA-Public Use
  Company Number: B0564453A

PATIENT
  Age: 81 Year
  Sex: Male

DRUGS (3)
  1. ARIXTRA [Suspect]
     Indication: DRUG USE FOR UNKNOWN INDICATION
     Dosage: 2.5MG PER DAY
     Route: 058
     Dates: start: 20081212, end: 20090201
  2. RIFADIN [Suspect]
     Indication: OSTEITIS
     Dosage: 600MG TWICE PER DAY
     Route: 048
     Dates: start: 20081201, end: 20081222
  3. FUCIDINE CAP [Suspect]
     Indication: OSTEITIS
     Dosage: 500MG THREE TIMES PER DAY
     Route: 065
     Dates: start: 20081201, end: 20081222

REACTIONS (4)
  - ACUTE PULMONARY OEDEMA [None]
  - DYSPNOEA [None]
  - GENERALISED OEDEMA [None]
  - RALES [None]
